FAERS Safety Report 22134097 (Version 1)
Quarter: 2023Q1

REPORT INFORMATION
  Report Type: Spontaneous
  Country: DK (occurrence: DK)
  Receive Date: 20230324
  Receipt Date: 20230324
  Transmission Date: 20230417
  Serious: Yes (Other)
  Sender: FDA-Public Use
  Company Number: None

PATIENT
  Age: 58 Year
  Sex: Female
  Weight: 71 kg

DRUGS (14)
  1. HYRIMOZ [Suspect]
     Active Substance: ADALIMUMAB-ADAZ
     Indication: Rheumatoid arthritis
     Dosage: 40 MG, Q2W
     Route: 058
     Dates: start: 20210312
  2. ARAVA [Concomitant]
     Active Substance: LEFLUNOMIDE
     Indication: Rheumatoid arthritis
     Dosage: 20 MG, BID
     Route: 048
     Dates: start: 20201124
  3. XARELTO [Concomitant]
     Active Substance: RIVAROXABAN
     Indication: Thrombosis prophylaxis
     Dosage: 20 MG, QD
     Route: 048
     Dates: start: 20170911
  4. IBUPROFEN [Concomitant]
     Active Substance: IBUPROFEN
     Indication: Rheumatic disorder
     Dosage: 400 MG, PRN (DOSAGE: MAXIMUM 3 TIMES DAILY)
     Route: 048
     Dates: start: 20171212
  5. CENTYL MITE MED KALIUMKLORID [Concomitant]
     Indication: Diuretic therapy
     Dosage: 1 DOSAGE FORM, QD
     Route: 048
     Dates: start: 20160509
  6. FOLIC ACID [Concomitant]
     Active Substance: FOLIC ACID
     Indication: Vitamin supplementation
     Dosage: UNK (TUESDAY - FRIDAY - SUNDAY.)
     Route: 048
     Dates: start: 20170911, end: 20210607
  7. DEXOFAN [Concomitant]
     Indication: Antitussive therapy
     Dosage: 30 MG, PRN (MAXIMUM 3 TIMES DAILY)
     Route: 048
     Dates: start: 20200316, end: 20210607
  8. CALCIUM [Concomitant]
     Active Substance: CALCIUM
     Indication: Vitamin supplementation
     Dosage: 2 DOSAGE FORM, QD (STRENGTH: 400 MG + 19 MICROGRAM)
     Route: 048
     Dates: start: 20170817
  9. METHOTREXATE [Concomitant]
     Active Substance: METHOTREXATE
     Indication: Rheumatoid arthritis
     Dosage: UNK
     Route: 030
     Dates: start: 20170123, end: 20210607
  10. HYPROSAN [Concomitant]
     Indication: Eye lubrication therapy
     Dosage: 3 DRP, QD (DOSAGE: IN BOTH EYES)
     Dates: start: 20171218
  11. PREDNISOLONE [Concomitant]
     Active Substance: PREDNISOLONE
     Indication: Adrenocortical steroid therapy
     Dosage: DOSAGE: MAXIMUM 2 TIMES DAILY. STRENGTH: 5 MG
     Route: 048
     Dates: start: 20170717, end: 20210607
  12. COLGATE DURAPHAT [Concomitant]
     Active Substance: SODIUM FLUORIDE
     Indication: Dental caries
     Dosage: UNK (1 CM TOOTH PASTE 2 TIMES DAILY)
     Route: 004
     Dates: start: 20191219
  13. METHIMAZOLE [Concomitant]
     Active Substance: METHIMAZOLE
     Indication: Hyperthyroidism
     Dosage: 2.5 MG,QD
     Route: 048
     Dates: start: 20190614
  14. MAGNESIA ^DAK^ [Concomitant]
     Indication: Constipation
     Dosage: 500 MG ( MAXIMUM 2 TIMES DAILY)
     Route: 048
     Dates: start: 20170817

REACTIONS (1)
  - Dermatitis bullous [Not Recovered/Not Resolved]

NARRATIVE: CASE EVENT DATE: 20210503
